FAERS Safety Report 21880951 (Version 1)
Quarter: 2023Q1

REPORT INFORMATION
  Report Type: Spontaneous
  Country: US (occurrence: US)
  Receive Date: 20230118
  Receipt Date: 20230118
  Transmission Date: 20230418
  Serious: No
  Sender: FDA-Public Use
  Company Number: US-JNJFOC-20230134881

PATIENT
  Sex: Male

DRUGS (3)
  1. ERLEADA [Suspect]
     Active Substance: APALUTAMIDE
     Indication: Prostate cancer
     Route: 048
     Dates: start: 20210901
  2. ELIQUIS [Concomitant]
     Active Substance: APIXABAN
  3. AMLODIPINE BESYLATE;BENAZEPRIL [Concomitant]

REACTIONS (1)
  - Hot flush [Unknown]
